FAERS Safety Report 10404219 (Version 1)
Quarter: 2014Q1

REPORT INFORMATION
  Report Type: Spontaneous
  Country: US (occurrence: None)
  Receive Date: 20140122
  Receipt Date: 20140122
  Transmission Date: 20141002
  Serious: No
  Sender: FDA-Public Use
  Company Number: AEGR000055

PATIENT
  Age: 50 Year
  Sex: Female
  Weight: 74.8 kg

DRUGS (4)
  1. JUXTAPID [Suspect]
     Indication: TYPE IIA HYPERLIPIDAEMIA
     Route: 048
     Dates: start: 20130513
  2. PRAVASTATIN [Suspect]
     Dates: end: 20130512
  3. ASPIRIN (ACETYLSALICYLIC ACID) [Concomitant]
  4. HYDROCODONE/APAP (HYDROCODONE BITARTRATE, PARACETAMOL) [Concomitant]

REACTIONS (4)
  - Muscle spasms [None]
  - Paraesthesia [None]
  - Local swelling [None]
  - Feeling hot [None]
